FAERS Safety Report 6980528-0 (Version None)
Quarter: 2010Q3

REPORT INFORMATION
  Report Type: 
  Country: None (occurrence: None)
  Receive Date: 20100914
  Receipt Date: 20100906
  Transmission Date: 20110219
  Serious: Yes (Hospitalization)
  Sender: FDA-Public Use
  Company Number: PHHY2010DK41458

PATIENT
  Sex: Male
  Weight: 75 kg

DRUGS (1)
  1. LAMISIL [Suspect]
     Indication: DERMATOPHYTOSIS
     Dosage: 250 MILLIGRAM (S)
     Route: 048
     Dates: start: 20091001, end: 20091201

REACTIONS (2)
  - PHOTODERMATOSIS [None]
  - PRURITUS [None]
